FAERS Safety Report 4731749-9 (Version None)
Quarter: 2005Q3

REPORT INFORMATION
  Report Type: 
  Country: None (occurrence: None)
  Receive Date: 20050802
  Receipt Date: 20050802
  Transmission Date: 20060218
  Serious: Yes (Hospitalization)
  Sender: FDA-Public Use
  Company Number: None

PATIENT
  Age: 84 Year
  Sex: Female
  Weight: 53.9 kg

DRUGS (13)
  1. VISIPAQUE [Suspect]
     Indication: ANGIOGRAM
     Dosage: IV OTO
     Route: 042
     Dates: start: 20050517
  2. TYLENOL (CAPLET) [Concomitant]
  3. VIT C [Concomitant]
  4. POTASSIUM CHLORIDE [Concomitant]
  5. LASIX [Concomitant]
  6. CARDIZEM [Concomitant]
  7. QUININE SULFATE [Concomitant]
  8. TRICOR [Concomitant]
  9. COUMADIN [Concomitant]
  10. DIOVAN [Concomitant]
  11. LANOXIN [Concomitant]
  12. EVISTA [Concomitant]
  13. TORADOL [Concomitant]

REACTIONS (8)
  - DIALYSIS [None]
  - HAEMORRHAGE [None]
  - HYPOTENSION [None]
  - OLIGURIA [None]
  - POST PROCEDURAL COMPLICATION [None]
  - RENAL FAILURE ACUTE [None]
  - RENAL TUBULAR NECROSIS [None]
  - RETROPERITONEAL HAEMORRHAGE [None]
